FAERS Safety Report 23043801 (Version 1)
Quarter: 2023Q4

REPORT INFORMATION
  Report Type: Spontaneous
  Country: GB (occurrence: GB)
  Receive Date: 20231009
  Receipt Date: 20231009
  Transmission Date: 20240109
  Serious: Yes (Other)
  Sender: FDA-Public Use
  Company Number: GB-MHRA-MED-202309282313451820-TRGWS

PATIENT
  Age: 35 Year
  Sex: Female
  Weight: 66 kg

DRUGS (1)
  1. LEVONORGESTREL [Suspect]
     Active Substance: LEVONORGESTREL
     Indication: Heavy menstrual bleeding
     Dosage: TIME INTERVAL: AS NECESSARY
     Route: 015
     Dates: start: 20230907

REACTIONS (3)
  - Palpitations [Not Recovered/Not Resolved]
  - Dyspnoea [Unknown]
  - Chest pain [Unknown]

NARRATIVE: CASE EVENT DATE: 20230101
